FAERS Safety Report 15782521 (Version 48)
Quarter: 2025Q1

REPORT INFORMATION
  Report Type: Spontaneous
  Country: IL (occurrence: IL)
  Receive Date: 20190102
  Receipt Date: 20250116
  Transmission Date: 20250409
  Serious: Yes (Other)
  Sender: PFIZER
  Company Number: IL-PFIZER INC-2018350729

PATIENT
  Age: 45 Year
  Sex: Male

DRUGS (28)
  1. ELELYSO [Suspect]
     Active Substance: TALIGLUCERASE ALFA
     Indication: Gaucher^s disease
     Route: 042
     Dates: start: 20160301
  2. ELELYSO [Suspect]
     Active Substance: TALIGLUCERASE ALFA
     Route: 042
     Dates: start: 20170606
  3. ELELYSO [Suspect]
     Active Substance: TALIGLUCERASE ALFA
     Route: 042
  4. ELELYSO [Suspect]
     Active Substance: TALIGLUCERASE ALFA
     Route: 042
  5. ELELYSO [Suspect]
     Active Substance: TALIGLUCERASE ALFA
     Route: 042
  6. ELELYSO [Suspect]
     Active Substance: TALIGLUCERASE ALFA
     Route: 042
  7. ELELYSO [Suspect]
     Active Substance: TALIGLUCERASE ALFA
     Route: 042
  8. ELELYSO [Suspect]
     Active Substance: TALIGLUCERASE ALFA
     Route: 042
  9. ELELYSO [Suspect]
     Active Substance: TALIGLUCERASE ALFA
     Route: 042
  10. ELELYSO [Suspect]
     Active Substance: TALIGLUCERASE ALFA
     Route: 042
  11. ELELYSO [Suspect]
     Active Substance: TALIGLUCERASE ALFA
     Route: 042
  12. ELELYSO [Suspect]
     Active Substance: TALIGLUCERASE ALFA
  13. ELELYSO [Suspect]
     Active Substance: TALIGLUCERASE ALFA
     Route: 042
  14. ELELYSO [Suspect]
     Active Substance: TALIGLUCERASE ALFA
     Route: 042
  15. ELELYSO [Suspect]
     Active Substance: TALIGLUCERASE ALFA
     Route: 042
     Dates: start: 20230503, end: 20230503
  16. ELELYSO [Suspect]
     Active Substance: TALIGLUCERASE ALFA
     Route: 042
     Dates: start: 20230529, end: 20230529
  17. ELELYSO [Suspect]
     Active Substance: TALIGLUCERASE ALFA
     Route: 042
     Dates: start: 20230823, end: 20230823
  18. ELELYSO [Suspect]
     Active Substance: TALIGLUCERASE ALFA
     Route: 042
     Dates: start: 20230913
  19. ELELYSO [Suspect]
     Active Substance: TALIGLUCERASE ALFA
     Route: 042
  20. ELELYSO [Suspect]
     Active Substance: TALIGLUCERASE ALFA
     Route: 042
     Dates: start: 20231018
  21. ELELYSO [Suspect]
     Active Substance: TALIGLUCERASE ALFA
     Route: 042
  22. ELELYSO [Suspect]
     Active Substance: TALIGLUCERASE ALFA
     Route: 042
     Dates: start: 20240516
  23. ELELYSO [Suspect]
     Active Substance: TALIGLUCERASE ALFA
     Route: 042
     Dates: start: 20240603
  24. ELELYSO [Suspect]
     Active Substance: TALIGLUCERASE ALFA
     Route: 042
     Dates: start: 20240711
  25. ELELYSO [Suspect]
     Active Substance: TALIGLUCERASE ALFA
     Route: 042
     Dates: start: 20240730, end: 20240730
  26. ELELYSO [Suspect]
     Active Substance: TALIGLUCERASE ALFA
     Route: 042
     Dates: start: 20241007, end: 20241007
  27. ELELYSO [Suspect]
     Active Substance: TALIGLUCERASE ALFA
     Route: 042
     Dates: start: 20241028, end: 20241028
  28. ELELYSO [Suspect]
     Active Substance: TALIGLUCERASE ALFA
     Route: 042
     Dates: start: 20250113

REACTIONS (10)
  - Cholelithiasis [Unknown]
  - Somnolence [Unknown]
  - COVID-19 [Recovered/Resolved]
  - Cough [Unknown]
  - Drug monitoring procedure incorrectly performed [Unknown]
  - Product dose omission issue [Unknown]
  - Off label use [Unknown]
  - Inappropriate schedule of product administration [Unknown]
  - Pyrexia [Recovered/Resolved]
  - Nasopharyngitis [Unknown]

NARRATIVE: CASE EVENT DATE: 20180828
